FAERS Safety Report 8556453-0 (Version None)
Quarter: 2012Q3

REPORT INFORMATION
  Report Type: 
  Country: None (occurrence: None)
  Receive Date: 20120801
  Receipt Date: 20120727
  Transmission Date: 20120928
  Serious: Yes (Disabling)
  Sender: FDA-Public Use
  Company Number: PHHY2010JP59737

PATIENT
  Sex: Female

DRUGS (8)
  1. DIOVAN [Concomitant]
     Indication: HYPERTENSION
     Dosage: 80 MG, UNK
     Route: 048
     Dates: start: 20100405
  2. AMARYL [Concomitant]
     Dosage: 1 MG, UNK
     Dates: start: 20100405
  3. TASIGNA [Suspect]
     Indication: CHRONIC MYELOID LEUKAEMIA
     Dosage: 800 MG, DAILY
     Route: 048
     Dates: start: 20100405, end: 20100620
  4. LENDORMIN [Concomitant]
     Indication: HYPERTENSION
  5. GLUCOBAY [Concomitant]
     Indication: DIABETES MELLITUS
     Dosage: 300 MG,
     Route: 048
     Dates: start: 20100405
  6. TASIGNA [Suspect]
     Dosage: 400 MG, DAILY
     Route: 048
     Dates: start: 20100621, end: 20100823
  7. LENDORMIN [Concomitant]
     Indication: CHRONIC MYELOID LEUKAEMIA
     Dosage: 0.25 MG, UNK
     Route: 048
     Dates: start: 20100405, end: 20100101
  8. NORVASC [Concomitant]
     Dosage: 5 MG, UNK
     Route: 048
     Dates: start: 20100405

REACTIONS (3)
  - ACUTE MYOCARDIAL INFARCTION [None]
  - EOSINOPHIL COUNT INCREASED [None]
  - HYPERGLYCAEMIA [None]
